FAERS Safety Report 24057372 (Version 1)
Quarter: 2024Q3

REPORT INFORMATION
  Report Type: Spontaneous
  Country: US (occurrence: US)
  Receive Date: 20240706
  Receipt Date: 20240706
  Transmission Date: 20241017
  Serious: Yes (Other)
  Sender: ABBVIE
  Company Number: US-ABBVIE-5826080

PATIENT
  Age: 5 Year
  Sex: Female

DRUGS (2)
  1. REFRESH OPTIVE ADVANCED [Suspect]
     Active Substance: CARBOXYMETHYLCELLULOSE SODIUM\GLYCERIN\POLYSORBATE 80
     Indication: Dry eye
     Route: 047
  2. REFRESH RELIEVA [Suspect]
     Active Substance: CARBOXYMETHYLCELLULOSE SODIUM\GLYCERIN
     Indication: Dry eye
     Route: 047

REACTIONS (1)
  - Blindness unilateral [Unknown]
